FAERS Safety Report 9055400 (Version 1)
Quarter: 2013Q1

REPORT INFORMATION
  Report Type: Spontaneous
  Country: US (occurrence: US)
  Receive Date: 20130206
  Receipt Date: 20130206
  Transmission Date: 20140127
  Serious: Yes (Hospitalization, Other)
  Sender: FDA-Public Use
  Company Number: US-BAYER-2013-012172

PATIENT
  Age: 37 Year
  Sex: Female

DRUGS (9)
  1. YASMIN [Suspect]
  2. YAZ [Suspect]
  3. OCELLA [Suspect]
  4. HYDROCODONE W/ACETAMINOPHEN [Concomitant]
     Route: 048
  5. SULFAMETHOXAZOLE [Concomitant]
     Route: 048
  6. MULTIVITAMINS [Concomitant]
  7. DEPAKOTE [Concomitant]
  8. LEXAPRO [Concomitant]
  9. OMEPRAZOLE [Concomitant]

REACTIONS (4)
  - Deep vein thrombosis [Recovered/Resolved]
  - Deep vein thrombosis [Recovered/Resolved]
  - Cerebrovascular accident [Recovered/Resolved]
  - Cholelithiasis [None]
